FAERS Safety Report 16417239 (Version 2)
Quarter: 2019Q3

REPORT INFORMATION
  Report Type: Spontaneous
  Country: US (occurrence: US)
  Receive Date: 20190611
  Receipt Date: 20190717
  Transmission Date: 20191004
  Serious: Yes (Life-Threatening, Hospitalization)
  Sender: FDA-Public Use
  Company Number: US-ACTELION-A-NJ2019-191443

PATIENT
  Age: 80 Year
  Sex: Female

DRUGS (4)
  1. ISOSORBIDE. [Concomitant]
     Active Substance: ISOSORBIDE
     Dosage: 6 UNK, QD
  2. AMLODIPINE [Concomitant]
     Active Substance: AMLODIPINE BESYLATE
     Dosage: 2.5 MG, QPM
  3. TRACLEER [Suspect]
     Active Substance: BOSENTAN
     Indication: PULMONARY HYPERTENSION
     Dosage: 125 MG, TID
     Route: 048
     Dates: start: 20090118
  4. DRONEDARONE [Concomitant]
     Active Substance: DRONEDARONE
     Dosage: 40 MG

REACTIONS (3)
  - Fall [Unknown]
  - Balance disorder [Unknown]
  - Spinal fracture [Unknown]

NARRATIVE: CASE EVENT DATE: 20190413
